FAERS Safety Report 6888147-1 (Version None)
Quarter: 2010Q3

REPORT INFORMATION
  Report Type: 
  Country: None (occurrence: None)
  Receive Date: 20100730
  Receipt Date: 20100722
  Transmission Date: 20110219
  Serious: Yes (Death, Life-Threatening)
  Sender: FDA-Public Use
  Company Number: JP-MERCK-1006USA03958

PATIENT
  Age: 89 Year
  Sex: Female
  Weight: 59 kg

DRUGS (11)
  1. PEPCID RPD [Suspect]
     Route: 048
     Dates: start: 20100531, end: 20100610
  2. DAI-KENCHU-TO [Concomitant]
     Route: 048
     Dates: start: 20100512, end: 20100603
  3. DIOVAN [Concomitant]
     Route: 065
     Dates: start: 20100512, end: 20100617
  4. AMLODIPINE BESYLATE [Concomitant]
     Route: 065
     Dates: start: 20100512, end: 20100617
  5. ALDACTONE [Concomitant]
     Route: 065
     Dates: start: 20100529, end: 20100617
  6. MAGMITT [Concomitant]
     Route: 065
     Dates: start: 20100526, end: 20100617
  7. MUCOSOLVAN [Concomitant]
     Route: 065
     Dates: start: 20100511, end: 20100617
  8. LASIX [Concomitant]
     Route: 065
     Dates: start: 20100521, end: 20100617
  9. HOKUNALIN [Concomitant]
     Route: 065
     Dates: start: 20100511, end: 20100531
  10. SOL MELCORT [Concomitant]
     Route: 065
     Dates: start: 20100511, end: 20100531
  11. DECADRON [Concomitant]
     Route: 065
     Dates: start: 20100601, end: 20100610

REACTIONS (2)
  - PANCYTOPENIA [None]
  - PNEUMONIA [None]
